FAERS Safety Report 7230030-6 (Version None)
Quarter: 2011Q1

REPORT INFORMATION
  Report Type: 
  Country: None (occurrence: None)
  Receive Date: 20110118
  Receipt Date: 20110107
  Transmission Date: 20110831
  Serious: Yes (Death, Hospitalization)
  Sender: FDA-Public Use
  Company Number: NO-AMGEN-NORSP2010009746

PATIENT

DRUGS (5)
  1. ORUDIS                             /00321701/ [Concomitant]
     Dosage: 200 MG, BID
     Dates: start: 20101009, end: 20101101
  2. ENBREL [Suspect]
     Indication: ANKYLOSING SPONDYLITIS
     Dosage: 50 MG, UNK
     Dates: start: 20050101, end: 20101001
  3. ENALAPRIL [Concomitant]
     Dosage: 5 MG, QD
     Dates: start: 20101009, end: 20101101
  4. ALENDRONATE [Concomitant]
     Dosage: 70 MG, QWK
     Dates: start: 20101009, end: 20101101
  5. ENBREL [Suspect]
     Dosage: 50 MG, UNK
     Dates: start: 20040101, end: 20101001

REACTIONS (2)
  - LUNG NEOPLASM [None]
  - ENTEROCOCCAL INFECTION [None]
